APPROVED DRUG PRODUCT: ACIPHEX SPRINKLE
Active Ingredient: RABEPRAZOLE SODIUM
Strength: 10MG
Dosage Form/Route: CAPSULE, DELAYED RELEASE;ORAL
Application: N204736 | Product #002
Applicant: AYTU BIOSCIENCE INC
Approved: Mar 26, 2013 | RLD: Yes | RS: No | Type: DISCN